FAERS Safety Report 21447980 (Version 1)
Quarter: 2022Q4

REPORT INFORMATION
  Report Type: Spontaneous
  Country: SE (occurrence: SE)
  Receive Date: 20221012
  Receipt Date: 20221012
  Transmission Date: 20230112
  Serious: Yes (Hospitalization, Other)
  Sender: FDA-Public Use
  Company Number: None

PATIENT
  Age: 57 Year
  Sex: Female

DRUGS (4)
  1. OXYCODONE HYDROCHLORIDE [Suspect]
     Active Substance: OXYCODONE HYDROCHLORIDE
     Indication: Product used for unknown indication
     Dosage: 5 MILLIGRAM (OXICODONE DEPOT 5 MG)
     Route: 065
     Dates: start: 202207
  2. IMOVANE [Suspect]
     Active Substance: ZOPICLONE
     Indication: Insomnia
     Dosage: UNK
     Route: 065
     Dates: start: 202207
  3. TRIMEPRAZINE [Suspect]
     Active Substance: TRIMEPRAZINE
     Indication: Product used for unknown indication
     Dosage: UNK
     Route: 065
     Dates: start: 202207
  4. HYDROKORTISON [Concomitant]
     Indication: Product used for unknown indication
     Dosage: DOSAGE: 20 MG+10 MG
     Route: 065

REACTIONS (5)
  - Hypotension [Unknown]
  - Depressed level of consciousness [Unknown]
  - Respiratory failure [Unknown]
  - Suicidal ideation [Unknown]
  - Toxicity to various agents [Unknown]

NARRATIVE: CASE EVENT DATE: 20220701
